FAERS Safety Report 17719160 (Version 6)
Quarter: 2021Q1

REPORT INFORMATION
  Report Type: Report from Study
  Country: PA (occurrence: PA)
  Receive Date: 20200428
  Receipt Date: 20210204
  Transmission Date: 20210419
  Serious: Yes (Other)
  Sender: FDA-Public Use
  Company Number: NVSC2020PA085321

PATIENT
  Age: 36 Year
  Sex: Female

DRUGS (6)
  1. RITUXIMAB. [Suspect]
     Active Substance: RITUXIMAB
     Indication: PLATELET COUNT DECREASED
     Dosage: UNK
     Route: 065
     Dates: start: 201902
  2. PREDNISONE. [Suspect]
     Active Substance: PREDNISONE
     Indication: PLATELET COUNT DECREASED
     Dosage: 10 MG
     Route: 065
     Dates: start: 201902
  3. PLAQUINOL [Concomitant]
     Active Substance: HYDROXYCHLOROQUINE SULFATE
     Indication: PRODUCT USED FOR UNKNOWN INDICATION
     Dosage: UNK
     Route: 065
  4. REVOLADE [Suspect]
     Active Substance: ELTROMBOPAG OLAMINE
     Indication: IMMUNE THROMBOCYTOPENIA
     Dosage: 25 MG
     Route: 065
  5. PREDNISONE. [Suspect]
     Active Substance: PREDNISONE
     Dosage: 5 MG
     Route: 065
  6. REVOLADE [Suspect]
     Active Substance: ELTROMBOPAG OLAMINE
     Dosage: 75 MG, QD
     Route: 048
     Dates: start: 202007

REACTIONS (26)
  - Anxiety [Unknown]
  - Ageusia [Unknown]
  - Decreased appetite [Unknown]
  - Depression [Unknown]
  - Product use in unapproved indication [Unknown]
  - Headache [Unknown]
  - Connective tissue disorder [Unknown]
  - Weight increased [Unknown]
  - Stress [Recovering/Resolving]
  - Nasal congestion [Unknown]
  - Nasopharyngitis [Recovering/Resolving]
  - Insomnia [Recovering/Resolving]
  - Malaise [Unknown]
  - Pain [Unknown]
  - Platelet count increased [Unknown]
  - Anosmia [Unknown]
  - Dyspnoea [Unknown]
  - Asthenia [Unknown]
  - Fatigue [Unknown]
  - Alopecia [Unknown]
  - Nervousness [Recovering/Resolving]
  - Oligomenorrhoea [Unknown]
  - Thermal burn [Unknown]
  - Dysstasia [Unknown]
  - Platelet count decreased [Unknown]
  - Bone pain [Recovering/Resolving]

NARRATIVE: CASE EVENT DATE: 20201113
